FAERS Safety Report 9223374 (Version 1)
Quarter: 2013Q2

REPORT INFORMATION
  Report Type: Spontaneous
  Country: BE (occurrence: BE)
  Receive Date: 20130410
  Receipt Date: 20130410
  Transmission Date: 20140414
  Serious: Yes (Disabling)
  Sender: FDA-Public Use
  Company Number: BE-009507513-1302BEL007693

PATIENT
  Age: 87 Year
  Sex: Female
  Weight: 80 kg

DRUGS (7)
  1. COSOPT [Suspect]
     Indication: GLAUCOMA
     Dosage: 1 GTT, BID
     Route: 047
  2. TRUSOPT [Concomitant]
     Route: 047
  3. NOBITEN [Concomitant]
     Indication: HYPERTENSION
     Dosage: 3/4 TABS
     Route: 048
  4. COVERSYL (PERINDOPRIL ARGININE) [Concomitant]
     Indication: HYPERTENSION
     Dosage: 1 DF, UNK
     Route: 048
  5. OMEPRAZOLE [Concomitant]
     Dosage: 1 DF, UNK
     Route: 048
  6. AAS [Concomitant]
     Dosage: 1 DF, UNK
     Route: 048
  7. ZANIDIP [Concomitant]
     Dosage: 1 DF, UNK
     Route: 048

REACTIONS (1)
  - Hallucination, visual [Not Recovered/Not Resolved]
